FAERS Safety Report 6645984-6 (Version None)
Quarter: 2010Q1

REPORT INFORMATION
  Report Type: 
  Country: None (occurrence: None)
  Receive Date: 20100323
  Receipt Date: 20100315
  Transmission Date: 20100710
  Serious: Yes (Hospitalization)
  Sender: FDA-Public Use
  Company Number: US-ASTRAZENECA-2010SE11380

PATIENT
  Age: 25904 Day
  Sex: Male
  Weight: 136.1 kg

DRUGS (4)
  1. PULMICORT RESPULES [Suspect]
     Route: 055
     Dates: start: 20091228, end: 20100104
  2. PULMICORT RESPULES [Suspect]
     Route: 055
     Dates: start: 20100114
  3. INSULIN [Concomitant]
     Indication: DIABETES MELLITUS
     Route: 058
  4. METOPROLOL TARTRATE [Concomitant]
     Indication: HYPERTENSION
     Route: 048

REACTIONS (3)
  - ASTHENIA [None]
  - PCO2 INCREASED [None]
  - WHEEZING [None]
